FAERS Safety Report 7407867-3 (Version None)
Quarter: 2011Q2

REPORT INFORMATION
  Report Type: 
  Country: None (occurrence: None)
  Receive Date: 20110401
  Receipt Date: 20110317
  Transmission Date: 20111010
  Serious: Yes (Hospitalization)
  Sender: FDA-Public Use
  Company Number: 029432

PATIENT
  Age: 17 Year
  Sex: Female

DRUGS (4)
  1. CIMZIA [Suspect]
     Indication: CROHN'S DISEASE
     Dosage: (400 MG 1X/4 WEEKS SUBCUTANEOUS)
     Route: 058
     Dates: start: 20110125
  2. ENTOCORT EC [Concomitant]
  3. PREDNISONE [Concomitant]
  4. PENTASA [Concomitant]

REACTIONS (3)
  - ILEAL STENOSIS [None]
  - OFF LABEL USE [None]
  - APPENDICITIS PERFORATED [None]
